FAERS Safety Report 5027972-9 (Version None)
Quarter: 2006Q2

REPORT INFORMATION
  Report Type: 
  Country: None (occurrence: None)
  Receive Date: 20060616
  Receipt Date: 20060605
  Transmission Date: 20061013
  Serious: Yes (Hospitalization, Other)
  Sender: FDA-Public Use
  Company Number: ES-GILEAD-2006-0009688

PATIENT
  Age: 46 Year
  Sex: Female
  Weight: 71 kg

DRUGS (3)
  1. TRUVADA [Suspect]
     Route: 048
     Dates: start: 20060420, end: 20060506
  2. NORVIR [Suspect]
     Route: 048
     Dates: start: 20060420, end: 20060506
  3. INVIRASE [Suspect]
     Route: 048
     Dates: start: 20060420, end: 20060506

REACTIONS (5)
  - APHTHOUS STOMATITIS [None]
  - DRY MOUTH [None]
  - HYPOAESTHESIA [None]
  - PARAESTHESIA [None]
  - SWELLING FACE [None]
